FAERS Safety Report 6824253-5 (Version None)
Quarter: 2010Q3

REPORT INFORMATION
  Report Type: 
  Country: None (occurrence: None)
  Receive Date: 20100708
  Receipt Date: 20061110
  Transmission Date: 20110219
  Serious: Yes (Other)
  Sender: FDA-Public Use
  Company Number: US-PFIZER INC-2006125595

PATIENT
  Sex: Female
  Weight: 52.16 kg

DRUGS (12)
  1. CHANTIX [Suspect]
     Indication: SMOKING CESSATION THERAPY
     Dates: start: 20060929, end: 20061008
  2. REGLAN [Concomitant]
  3. CYMBALTA [Concomitant]
  4. PROZAC [Concomitant]
  5. ALL OTHER THERAPEUTIC PRODUCTS [Concomitant]
  6. DOXYCYCLINE [Concomitant]
  7. TAMOXIFEN CITRATE [Concomitant]
  8. OMEPRAZOLE [Concomitant]
  9. DYAZIDE [Concomitant]
  10. CARAFATE [Concomitant]
  11. FOLIC ACID [Concomitant]
  12. FIORICET [Concomitant]

REACTIONS (6)
  - AGITATION [None]
  - DEPRESSION [None]
  - FEELING ABNORMAL [None]
  - HEADACHE [None]
  - NAUSEA [None]
  - ULCER [None]
